FAERS Safety Report 22351886 (Version 1)
Quarter: 2023Q2

REPORT INFORMATION
  Report Type: Spontaneous
  Country: US (occurrence: None)
  Receive Date: 20230522
  Receipt Date: 20230522
  Transmission Date: 20230721
  Serious: No
  Sender: FDA-Public Use
  Company Number: None

PATIENT
  Age: 70 Year
  Sex: Male
  Weight: 107.95 kg

DRUGS (21)
  1. LENALIDOMIDE [Suspect]
     Active Substance: LENALIDOMIDE
     Indication: Plasma cell myeloma
     Dosage: FREQUENCY : DAILY;?
     Route: 048
  2. ACYCLOVIR [Concomitant]
     Active Substance: ACYCLOVIR
  3. BACLOFEN [Concomitant]
     Active Substance: BACLOFEN
  4. VITAMINS [Concomitant]
     Active Substance: VITAMINS
  5. CLINDAMYCIN [Concomitant]
     Active Substance: CLINDAMYCIN
  6. DEXAMETHASONE [Concomitant]
     Active Substance: DEXAMETHASONE
  7. DULOXETINE [Concomitant]
     Active Substance: DULOXETINE
  8. GABAPENTIN [Concomitant]
     Active Substance: GABAPENTIN
  9. HYDROCHLOROTHIAZIDE [Concomitant]
     Active Substance: HYDROCHLOROTHIAZIDE
  10. JANTOVEN [Concomitant]
     Active Substance: WARFARIN SODIUM
  11. LOSARTAN [Concomitant]
     Active Substance: LOSARTAN
  12. METFORMIN [Concomitant]
     Active Substance: METFORMIN HYDROCHLORIDE
  13. METOPROLOL [Concomitant]
     Active Substance: METOPROLOL
  14. PILOCARPINE [Concomitant]
     Active Substance: PILOCARPINE
  15. POTASSIUM [Concomitant]
     Active Substance: POTASSIUM
  16. PREDNISONE [Concomitant]
     Active Substance: PREDNISONE
  17. QUETIAPINE [Concomitant]
     Active Substance: QUETIAPINE
  18. REVLIMID [Concomitant]
     Active Substance: LENALIDOMIDE
  19. ROSUVASTATIN [Concomitant]
     Active Substance: ROSUVASTATIN
  20. TRAMADOL [Concomitant]
     Active Substance: TRAMADOL
  21. VITAMIN D3 [Concomitant]
     Active Substance: CHOLECALCIFEROL

REACTIONS (5)
  - Accident [None]
  - Shoulder fracture [None]
  - Joint injury [None]
  - Gait disturbance [None]
  - Limb injury [None]
